FAERS Safety Report 8809167 (Version 5)
Quarter: 2012Q4

REPORT INFORMATION
  Report Type: 
  Country: IE (occurrence: IE)
  Receive Date: 20120926
  Receipt Date: 20121210
  Transmission Date: 20130627
  Serious: Yes (Other)
  Sender: FDA-Public Use
  Company Number: PHFR2012IE005106

PATIENT
  Age: 37 Year
  Sex: Male

DRUGS (9)
  1. CLOZARIL [Suspect]
     Indication: SCHIZOPHRENIA
     Dosage: 175 mg, UNK
     Route: 048
     Dates: start: 20100309
  2. CLOZARIL [Suspect]
     Dosage: 200 mg, UNK
     Route: 048
  3. SERTRALINE [Concomitant]
     Dosage: 100 mg, UNK
     Route: 048
  4. PERINDOPRIL [Concomitant]
     Dosage: 8 mg, UNK
     Route: 048
  5. METFORMIN [Concomitant]
     Dosage: 850 mg, UNK
     Route: 048
  6. METFORMIN [Concomitant]
     Dosage: 1000 mg, UNK
     Route: 048
  7. ATENOLOL [Concomitant]
     Dosage: 100 mg, UNK
     Route: 048
  8. FENOFIBRATE [Concomitant]
     Dosage: 200 mg, UNK
     Route: 048
  9. ROSUVASTATIN [Concomitant]
     Dosage: 100 mg, UNK
     Route: 048

REACTIONS (2)
  - Differential white blood cell count abnormal [Recovering/Resolving]
  - Eosinophil count increased [Recovering/Resolving]
